FAERS Safety Report 15429871 (Version 2)
Quarter: 2018Q4

REPORT INFORMATION
  Report Type: Spontaneous
  Country: US (occurrence: US)
  Receive Date: 20180926
  Receipt Date: 20181105
  Transmission Date: 20190204
  Serious: Yes (Other)
  Sender: FDA-Public Use
  Company Number: US-AKORN PHARMACEUTICALS-2018AKN01414

PATIENT
  Sex: Male
  Weight: 59.86 kg

DRUGS (1)
  1. MYORISAN [Suspect]
     Active Substance: ISOTRETINOIN
     Indication: ACNE
     Dosage: 40 MG, 2X/DAY
     Dates: start: 20180225, end: 20180821

REACTIONS (2)
  - Mood altered [Unknown]
  - Fatigue [Unknown]

NARRATIVE: CASE EVENT DATE: 2018
